FAERS Safety Report 10452365 (Version 1)
Quarter: 2014Q3

REPORT INFORMATION
  Report Type: Spontaneous
  Country: US (occurrence: US)
  Receive Date: 20140915
  Receipt Date: 20140915
  Transmission Date: 20150326
  Serious: Yes (Other)
  Sender: FDA-Public Use
  Company Number: US-UCBSA-2014011507

PATIENT
  Age: 17 Year
  Sex: Female

DRUGS (5)
  1. VIMPAT [Suspect]
     Active Substance: LACOSAMIDE
     Indication: CONVULSION
     Dosage: UNKNOWN DOSE
  2. VALPROATE [Concomitant]
     Active Substance: VALPROATE SODIUM
     Indication: CONVULSION
     Dosage: UNKNOWN DOSE
  3. VIMPAT [Suspect]
     Active Substance: LACOSAMIDE
     Dosage: 10 GRAM
  4. LAMOTRIGINE. [Concomitant]
     Active Substance: LAMOTRIGINE
     Indication: OFF LABEL USE
  5. LAMOTRIGINE. [Concomitant]
     Active Substance: LAMOTRIGINE
     Indication: CONVULSION
     Dosage: UNKNOWN DOSE

REACTIONS (6)
  - Coma [Recovered/Resolved]
  - Metabolic acidosis [Unknown]
  - Electrocardiogram QRS complex prolonged [Recovered/Resolved]
  - Convulsion [Recovered/Resolved]
  - Haemodynamic instability [Recovered/Resolved]
  - Intentional overdose [Unknown]
